FAERS Safety Report 24328299 (Version 1)
Quarter: 2024Q3

REPORT INFORMATION
  Report Type: Report from Study
  Country: US (occurrence: US)
  Receive Date: 20240917
  Receipt Date: 20240917
  Transmission Date: 20241016
  Serious: Yes (Other)
  Sender: TEVA
  Company Number: US-TEVA-VS-3147979

PATIENT
  Age: 60 Year
  Sex: Male

DRUGS (3)
  1. AUSTEDO XR [Suspect]
     Active Substance: DEUTETRABENAZINE
     Indication: Tardive dyskinesia
     Route: 065
     Dates: start: 20230615
  2. AUSTEDO XR [Suspect]
     Active Substance: DEUTETRABENAZINE
     Indication: Tardive dyskinesia
     Route: 065
  3. AUSTEDO XR [Suspect]
     Active Substance: DEUTETRABENAZINE
     Indication: Tardive dyskinesia
     Route: 065
     Dates: start: 2024

REACTIONS (7)
  - Diabetes mellitus [Unknown]
  - Speech disorder [Unknown]
  - Fatigue [Unknown]
  - Narcolepsy [Unknown]
  - Dysarthria [Unknown]
  - Paraesthesia oral [Unknown]
  - Head injury [Unknown]

NARRATIVE: CASE EVENT DATE: 20240601
